FAERS Safety Report 9330843 (Version 1)
Quarter: 2013Q2

REPORT INFORMATION
  Report Type: Report from Study
  Country: NL (occurrence: NL)
  Receive Date: 20130605
  Receipt Date: 20130605
  Transmission Date: 20140414
  Serious: Yes (Hospitalization)
  Sender: FDA-Public Use
  Company Number: NL-JNJFOC-20071205111

PATIENT
  Age: 61 Year
  Sex: Female
  Weight: 93 kg

DRUGS (28)
  1. INFLIXIMAB [Suspect]
     Indication: CROHN^S DISEASE
     Route: 042
     Dates: start: 20050503
  2. INFLIXIMAB [Suspect]
     Indication: CROHN^S DISEASE
     Route: 042
     Dates: start: 20050318
  3. INFLIXIMAB [Suspect]
     Indication: CROHN^S DISEASE
     Route: 042
     Dates: start: 20050405
  4. IMURAN [Concomitant]
     Route: 048
     Dates: start: 20070507
  5. NEXIUM [Concomitant]
  6. SURGAM [Concomitant]
     Indication: RHEUMATOID ARTHRITIS
  7. LANTUS [Concomitant]
  8. CRESTOR [Concomitant]
     Route: 048
     Dates: start: 20060516, end: 200805
  9. ACTRAPID INSULIN [Concomitant]
     Route: 042
  10. COMBIVENT [Concomitant]
     Route: 055
  11. CALCIUM [Concomitant]
  12. METFORMIN [Concomitant]
     Indication: DIABETES MELLITUS
     Route: 048
     Dates: start: 20070618
  13. METFORMIN [Concomitant]
     Indication: DIABETES MELLITUS
     Route: 048
     Dates: start: 20070913
  14. PARACETAMOL [Concomitant]
     Dates: start: 20070913
  15. ODANSETRON [Concomitant]
  16. PREDNISON [Concomitant]
  17. NOVORAPID [Concomitant]
     Indication: DIABETES MELLITUS
  18. FOSAMAX [Concomitant]
     Indication: OSTEOPOROSIS
  19. COVERSYL [Concomitant]
  20. VENTOLIN [Concomitant]
     Indication: CHRONIC OBSTRUCTIVE PULMONARY DISEASE
  21. FUROSEMIDE [Concomitant]
  22. QVAR [Concomitant]
     Indication: CHRONIC OBSTRUCTIVE PULMONARY DISEASE
     Route: 055
  23. CALCICHEW [Concomitant]
     Indication: OSTEOPOROSIS
  24. SPIRIVA [Concomitant]
  25. REPAGLINIDE [Concomitant]
     Route: 048
     Dates: start: 20070618
  26. IRON SULPHATE [Concomitant]
     Route: 048
     Dates: start: 20070312
  27. NADROPARIN [Concomitant]
     Route: 058
     Dates: start: 20070219
  28. TRIAMTERENE [Concomitant]
     Route: 048
     Dates: start: 20060131

REACTIONS (2)
  - Femur fracture [Recovering/Resolving]
  - Fracture delayed union [Recovering/Resolving]
